FAERS Safety Report 9064699 (Version 2)
Quarter: 2013Q1

REPORT INFORMATION
  Report Type: Spontaneous
  Country: US (occurrence: US)
  Receive Date: 20130129
  Receipt Date: 20130212
  Transmission Date: 20140127
  Serious: Yes (Other)
  Sender: FDA-Public Use
  Company Number: US-RB-047397-12

PATIENT
  Age: 47 Year
  Sex: Female

DRUGS (3)
  1. SUBOXONE FILM [Suspect]
     Indication: DRUG DEPENDENCE
     Dosage: SUBOXONE FILM; INTERMITTENTLY WITH TABLETS ACCORDING TO INSURANCE COVERAGE
     Route: 060
     Dates: start: 2011, end: 201202
  2. SUBOXONE TABLET [Suspect]
     Indication: DRUG DEPENDENCE
     Dosage: INTERMITTENTLY WITH FILM ACCORDING TO INSURANCE COVERAGE
     Route: 060
     Dates: start: 2011, end: 201202
  3. COUMADIN [Concomitant]
     Indication: FACTOR V DEFICIENCY
     Route: 065
     Dates: start: 200802

REACTIONS (2)
  - Skin ulcer [Recovered/Resolved]
  - Blood pressure increased [Not Recovered/Not Resolved]
